FAERS Safety Report 6954304-9 (Version None)
Quarter: 2010Q3

REPORT INFORMATION
  Report Type: 
  Country: None (occurrence: None)
  Receive Date: 20100829
  Receipt Date: 20100713
  Transmission Date: 20110219
  Serious: No
  Sender: FDA-Public Use
  Company Number: US-ABBOTT-10P-163-0656779-00

PATIENT
  Sex: Female
  Weight: 67.192 kg

DRUGS (9)
  1. NIASPAN [Suspect]
     Indication: BLOOD TRIGLYCERIDES INCREASED
     Dosage: 2 TABLETS
     Dates: start: 20090101
  2. NIASPAN [Suspect]
     Dosage: 2 TABLETS
  3. NIASPAN [Suspect]
     Dosage: 3 TABLETS BUT SOMETIMES 2 TABLETS TAKES AS PRESCRIBED
  4. ASPIRIN [Concomitant]
     Indication: PRODUCT USED FOR UNKNOWN INDICATION
  5. ASPIRIN [Concomitant]
  6. LOVASTATIN [Concomitant]
     Indication: PRODUCT USED FOR UNKNOWN INDICATION
  7. CALCIUM WITH VITAMIN D [Concomitant]
     Indication: PRODUCT USED FOR UNKNOWN INDICATION
  8. VITAMIN D [Concomitant]
     Indication: PRODUCT USED FOR UNKNOWN INDICATION
  9. FISH OIL [Concomitant]
     Indication: PRODUCT USED FOR UNKNOWN INDICATION

REACTIONS (4)
  - FATIGUE [None]
  - FLUSHING [None]
  - HYPOTHYROIDISM [None]
  - NEUROPATHY PERIPHERAL [None]
